FAERS Safety Report 17002805 (Version 2)
Quarter: 2025Q3

REPORT INFORMATION
  Report Type: Report from Study
  Country: EU (occurrence: EU)
  Receive Date: 20191107
  Receipt Date: 20250701
  Transmission Date: 20251021
  Serious: Yes (Death, Other)
  Sender: AUROBINDO
  Company Number: EU-AUROBINDO-AUR-APL-2019-070551

PATIENT
  Age: 50 Year
  Sex: Male

DRUGS (9)
  1. VALGANCICLOVIR [Suspect]
     Active Substance: VALGANCICLOVIR
     Indication: Cytomegalovirus infection reactivation
     Route: 065
  2. FLUDARABINE [Suspect]
     Active Substance: FLUDARABINE PHOSPHATE
     Indication: Allogenic stem cell transplantation
     Route: 065
  3. MYCOPHENOLIC ACID [Suspect]
     Active Substance: MYCOPHENOLIC ACID
     Indication: Prophylaxis against graft versus host disease
     Route: 065
  4. BUSULFAN [Suspect]
     Active Substance: BUSULFAN
     Indication: Allogenic stem cell transplantation
     Route: 065
  5. CYCLOPHOSPHAMIDE [Suspect]
     Active Substance: CYCLOPHOSPHAMIDE
     Indication: Prophylaxis against graft versus host disease
     Route: 065
  6. THIOTEPA [Suspect]
     Active Substance: THIOTEPA
     Indication: Allogenic stem cell transplantation
     Route: 065
  7. CYCLOSPORINE [Suspect]
     Active Substance: CYCLOSPORINE
     Indication: Prophylaxis against graft versus host disease
     Route: 065
  8. FOSCARNET [Suspect]
     Active Substance: FOSCARNET
     Indication: Cytomegalovirus infection reactivation
     Route: 065
  9. ELTROMBOPAG [Concomitant]
     Active Substance: ELTROMBOPAG
     Indication: Thrombocytopenia
     Route: 065

REACTIONS (5)
  - Pneumonia [Fatal]
  - Transplant dysfunction [Recovered/Resolved]
  - Acute graft versus host disease [Unknown]
  - Cytomegalovirus infection reactivation [Unknown]
  - Chronic graft versus host disease [Unknown]
